FAERS Safety Report 11785570 (Version 1)
Quarter: 2015Q4

REPORT INFORMATION
  Report Type: Spontaneous
  Country: IT (occurrence: IT)
  Receive Date: 20151130
  Receipt Date: 20151130
  Transmission Date: 20160305
  Serious: Yes (Other)
  Sender: FDA-Public Use
  Company Number: PHHY2015IT155114

PATIENT
  Age: 78 Year
  Sex: Male

DRUGS (4)
  1. DEFEROXAMINE [Suspect]
     Active Substance: DEFEROXAMINE\DEFEROXAMINE MESYLATE
     Dosage: 30 MG/KG, QD
     Route: 065
  2. DEFEROXAMINE [Suspect]
     Active Substance: DEFEROXAMINE\DEFEROXAMINE MESYLATE
     Indication: LIVER IRON CONCENTRATION INCREASED
     Dosage: 30 MG/L, QD, (FIVE TIMES PER WEEK)
     Route: 058
  3. DEFERASIROX [Concomitant]
     Active Substance: DEFERASIROX
     Indication: LIVER IRON CONCENTRATION INCREASED
     Dosage: 15 MG/KG, QD
     Route: 065
  4. DEFEROXAMINE [Suspect]
     Active Substance: DEFEROXAMINE\DEFEROXAMINE MESYLATE
     Dosage: 40 MG/KG, QD
     Route: 065

REACTIONS (5)
  - Cardiac failure [Recovering/Resolving]
  - Dyspnoea exertional [Unknown]
  - Ejection fraction decreased [Recovered/Resolved]
  - Pruritus [Unknown]
  - Iron overload [Recovering/Resolving]
